FAERS Safety Report 26091224 (Version 3)
Quarter: 2025Q4

REPORT INFORMATION
  Report Type: Report from Study
  Country: CA (occurrence: CA)
  Receive Date: 20251126
  Receipt Date: 20251231
  Transmission Date: 20260118
  Serious: Yes (Other)
  Sender: ALEXION PHARMACEUTICALS
  Company Number: CA-AstraZeneca-CH-00998208A

PATIENT
  Age: 46 Year
  Sex: Female
  Weight: 51.6 kg

DRUGS (7)
  1. RAVULIZUMAB [Suspect]
     Active Substance: RAVULIZUMAB
     Indication: Paroxysmal nocturnal haemoglobinuria
     Dosage: 2400 MILLIGRAM, SINGLE
  2. RAVULIZUMAB [Suspect]
     Active Substance: RAVULIZUMAB
     Dosage: 3000 MILLIGRAM
  3. RAVULIZUMAB [Suspect]
     Active Substance: RAVULIZUMAB
     Dosage: 3000 MILLIGRAM, Q8W
     Dates: start: 20240920
  4. RAVULIZUMAB [Suspect]
     Active Substance: RAVULIZUMAB
     Dosage: 3000 MILLIGRAM, Q8W
     Dates: start: 20251018
  5. FOLIC ACID [Concomitant]
     Active Substance: FOLIC ACID
     Dosage: UNK
     Route: 065
  6. VITAMIN B12 [Concomitant]
     Active Substance: CYANOCOBALAMIN
     Dosage: UNK
     Route: 065
  7. IRON [Concomitant]
     Active Substance: IRON
     Dosage: UNK
     Route: 065

REACTIONS (3)
  - Lower respiratory tract infection [Unknown]
  - Extravascular haemolysis [Unknown]
  - Headache [Unknown]
